FAERS Safety Report 5061767-5 (Version None)
Quarter: 2006Q3

REPORT INFORMATION
  Report Type: 
  Country: None (occurrence: None)
  Receive Date: 20060726
  Receipt Date: 20060313
  Transmission Date: 20061208
  Serious: No
  Sender: FDA-Public Use
  Company Number: US-GLAXOSMITHKLINE-A0597355A

PATIENT
  Age: 33 Year
  Sex: Female

DRUGS (2)
  1. DYAZIDE [Suspect]
     Route: 048
  2. DELESTROGEN [Concomitant]
     Route: 058
     Dates: start: 20060301, end: 20060301

REACTIONS (4)
  - BLOOD PRESSURE INCREASED [None]
  - NAUSEA [None]
  - ORAL MUCOSAL BLISTERING [None]
  - PHARMACEUTICAL PRODUCT COMPLAINT [None]
